FAERS Safety Report 8957169 (Version 2)
Quarter: 2012Q4

REPORT INFORMATION
  Report Type: 
  Country: US (occurrence: US)
  Receive Date: 20121211
  Receipt Date: 20121224
  Transmission Date: 20130627
  Serious: Yes (Life-Threatening, Other)
  Sender: FDA-Public Use
  Company Number: US-ROCHE-1161629

PATIENT
  Sex: Female

DRUGS (6)
  1. AVASTIN [Suspect]
     Indication: COLORECTAL CANCER METASTATIC
     Route: 042
  2. LEUCOVORIN [Concomitant]
  3. FOLINIC ACID [Concomitant]
  4. 5-FLUOROURACIL [Concomitant]
  5. DECADRON [Concomitant]
  6. OXALIPLATIN [Concomitant]

REACTIONS (1)
  - Angioedema [Recovered/Resolved]
